FAERS Safety Report 6723958-4 (Version None)
Quarter: 2010Q2

REPORT INFORMATION
  Report Type: 
  Country: None (occurrence: None)
  Receive Date: 20100513
  Receipt Date: 20100430
  Transmission Date: 20101027
  Serious: Yes (Other)
  Sender: FDA-Public Use
  Company Number: PHHY2010DE28469

PATIENT
  Sex: Male

DRUGS (1)
  1. EXFORGE HCT [Suspect]
     Dosage: UNK
     Route: 048
     Dates: start: 20100318

REACTIONS (4)
  - HEART RATE INCREASED [None]
  - PALPITATIONS [None]
  - PAROXYSMAL ARRHYTHMIA [None]
  - VENTRICULAR FIBRILLATION [None]
